APPROVED DRUG PRODUCT: SUMATRIPTAN SUCCINATE
Active Ingredient: SUMATRIPTAN SUCCINATE
Strength: EQ 6MG BASE/0.5ML (EQ 12MG BASE/ML)
Dosage Form/Route: INJECTABLE;SUBCUTANEOUS
Application: A077332 | Product #001
Applicant: PH HEALTH LTD
Approved: Oct 9, 2009 | RLD: No | RS: No | Type: DISCN